FAERS Safety Report 15890030 (Version 3)
Quarter: 2019Q1

REPORT INFORMATION
  Report Type: Spontaneous
  Country: JP (occurrence: JP)
  Receive Date: 20190130
  Receipt Date: 20190327
  Transmission Date: 20190417
  Serious: Yes (Other)
  Sender: FDA-Public Use
  Company Number: JP-BRISTOL-MYERS SQUIBB COMPANY-BMS-2018-121644

PATIENT
  Age: 50 Year
  Sex: Male
  Weight: 63 kg

DRUGS (17)
  1. CALONAL [Concomitant]
     Active Substance: ACETAMINOPHEN
     Indication: PAIN
     Dosage: 500 MILLIGRAM, QID
     Route: 048
     Dates: start: 20181019, end: 20181023
  2. CALONAL [Concomitant]
     Active Substance: ACETAMINOPHEN
     Indication: PRODUCT USED FOR UNKNOWN INDICATION
     Dosage: 500 MILLIGRAM, TID
     Route: 048
     Dates: start: 20181114
  3. ROZEREM [Concomitant]
     Active Substance: RAMELTEON
     Indication: INSOMNIA
     Dosage: 8 MILLIGRAM, QD
     Route: 048
     Dates: start: 20181107
  4. FENTOS [Concomitant]
     Active Substance: FENTANYL
     Indication: PAIN
     Dosage: 1 MILLIGRAM, QD
     Dates: start: 20181107
  5. PREDONINE [Concomitant]
     Active Substance: PREDNISOLONE
     Indication: PRODUCT USED FOR UNKNOWN INDICATION
     Dosage: 50 MILLIGRAM, QD
     Route: 048
     Dates: start: 20181214, end: 20181220
  6. ROZEREM [Concomitant]
     Active Substance: RAMELTEON
     Indication: DELIRIUM
     Route: 065
  7. MAGMITT [Concomitant]
     Active Substance: MAGNESIUM OXIDE
     Indication: CONSTIPATION
     Dosage: 330 MILLIGRAM, TID
     Route: 048
     Dates: start: 20181108, end: 20190126
  8. LANSOPRAZOLE. [Concomitant]
     Active Substance: LANSOPRAZOLE
     Indication: PROPHYLAXIS AGAINST GASTROINTESTINAL ULCER
     Dosage: 15 MILLIGRAM, QD
     Route: 048
     Dates: start: 20181128
  9. SOLANAX [Concomitant]
     Active Substance: ALPRAZOLAM
     Indication: DELIRIUM
     Route: 065
  10. YERVOY [Suspect]
     Active Substance: IPILIMUMAB
     Indication: RENAL CELL CARCINOMA
     Dosage: 66 MILLIGRAM
     Route: 041
     Dates: start: 20181022, end: 20181225
  11. ZYPREXA [Concomitant]
     Active Substance: OLANZAPINE
     Indication: INSOMNIA
     Dosage: 5 MILLIGRAM, QD
     Route: 048
     Dates: start: 20181019
  12. OXYCODONE                          /00045603/ [Concomitant]
     Active Substance: OXYCODONE
     Indication: PAIN
     Dosage: 10 MILLIGRAM, BID
     Route: 048
     Dates: start: 20181019, end: 20181024
  13. BILANOA [Concomitant]
     Active Substance: BILASTINE
     Indication: RASH
     Dosage: 20 MILLIGRAM, QD
     Route: 048
     Dates: start: 20181128
  14. OPDIVO [Suspect]
     Active Substance: NIVOLUMAB
     Indication: RENAL CELL CARCINOMA
     Dosage: 240 MG, UNK
     Route: 041
     Dates: start: 20181022, end: 20190115
  15. LOXOPROFEN                         /00890702/ [Concomitant]
     Active Substance: LOXOPROFEN
     Indication: PAIN
     Dosage: 60 MILLIGRAM, TID
     Route: 048
     Dates: start: 20181019, end: 20181023
  16. SOLANAX [Concomitant]
     Active Substance: ALPRAZOLAM
     Indication: INSOMNIA
     Dosage: 0.4 MILLIGRAM, QD
     Route: 048
     Dates: start: 20181107
  17. PREDONINE [Concomitant]
     Active Substance: PREDNISOLONE
     Indication: RASH
     Dosage: 30 MILLIGRAM, BID
     Route: 048
     Dates: start: 20181204, end: 20181213

REACTIONS (5)
  - Muscular weakness [Recovering/Resolving]
  - Cutaneous symptom [Recovering/Resolving]
  - Diarrhoea [Recovered/Resolved]
  - Delirium [Recovered/Resolved]
  - Rash [Recovered/Resolved]

NARRATIVE: CASE EVENT DATE: 20181024
